FAERS Safety Report 18018879 (Version 1)
Quarter: 2020Q3

REPORT INFORMATION
  Report Type: Spontaneous
  Country: US (occurrence: US)
  Receive Date: 20200714
  Receipt Date: 20200714
  Transmission Date: 20201103
  Serious: Yes (Hospitalization)
  Sender: FDA-Public Use
  Company Number: None

PATIENT
  Sex: Male
  Weight: 74.2 kg

DRUGS (2)
  1. ENCORAFENIB [Concomitant]
     Active Substance: ENCORAFENIB
     Dates: end: 20200706
  2. BINIMETINIB (788187) [Suspect]
     Active Substance: BINIMETINIB
     Dates: end: 20200707

REACTIONS (6)
  - Abdominal pain [None]
  - Pyrexia [None]
  - Fatigue [None]
  - Diarrhoea [None]
  - Blood creatine phosphokinase increased [None]
  - Myalgia [None]

NARRATIVE: CASE EVENT DATE: 20200706
